FAERS Safety Report 8069201 (Version 4)
Quarter: 2013Q1

REPORT INFORMATION
  Report Type: Spontaneous
  Country: CA (occurrence: CA)
  Receive Date: 20110804
  Receipt Date: 20130213
  Transmission Date: 20140127
  Serious: Yes (Other)
  Sender: FDA-Public Use
  Company Number: CA-GLAXOSMITHKLINE-A0935047A

PATIENT
  Age: 36 Year
  Sex: Female
  Weight: 58 kg

DRUGS (7)
  1. TYKERB [Suspect]
     Indication: BREAST CANCER METASTATIC
     Dosage: 1500MG PER DAY
     Route: 048
     Dates: start: 20110518, end: 20110728
  2. XELODA [Suspect]
     Indication: BREAST CANCER METASTATIC
     Dosage: 650MG TWICE PER DAY
     Route: 065
  3. LETROZOLE [Concomitant]
     Indication: BREAST CANCER STAGE IV
     Dosage: 2.5MG PER DAY
     Route: 048
     Dates: start: 20110518
  4. TYLENOL [Concomitant]
  5. DECADRON [Concomitant]
  6. MAXERAN [Concomitant]
  7. XGEVA [Concomitant]
     Route: 042

REACTIONS (17)
  - Dry skin [Unknown]
  - Epistaxis [Unknown]
  - Erythema [Unknown]
  - Constipation [Recovering/Resolving]
  - Malignant neoplasm progression [Not Recovered/Not Resolved]
  - Metastases to liver [Not Recovered/Not Resolved]
  - Metastases to bone [Not Recovered/Not Resolved]
  - Skin fissures [Not Recovered/Not Resolved]
  - Skin atrophy [Not Recovered/Not Resolved]
  - Decreased appetite [Not Recovered/Not Resolved]
  - Genital pain [Not Recovered/Not Resolved]
  - Skin fissures [Not Recovered/Not Resolved]
  - Weight control [Not Recovered/Not Resolved]
  - Dyspareunia [Unknown]
  - Dysuria [Unknown]
  - Fatigue [Unknown]
  - Stress [Unknown]
